FAERS Safety Report 7801473-4 (Version None)
Quarter: 2011Q4

REPORT INFORMATION
  Report Type: 
  Country: None (occurrence: None)
  Receive Date: 20111007
  Receipt Date: 20110928
  Transmission Date: 20120403
  Serious: Yes (Hospitalization)
  Sender: FDA-Public Use
  Company Number: GB-JNJFOC-20110908179

PATIENT
  Age: 56 Year
  Sex: Female
  Weight: 72 kg

DRUGS (8)
  1. GOLIMUMAB [Suspect]
     Route: 058
     Dates: start: 20110815
  2. GOLIMUMAB [Suspect]
     Indication: RHEUMATOID ARTHRITIS
     Route: 058
     Dates: start: 20100915
  3. METHOTREXATE [Concomitant]
     Indication: RHEUMATOID ARTHRITIS
     Route: 058
     Dates: start: 20100330
  4. ATENOLOL [Concomitant]
     Route: 048
     Dates: start: 19990101
  5. CO-DYDRAMOL [Concomitant]
     Dosage: UP TO 8/DAY
     Route: 048
     Dates: start: 20060101
  6. FOLIC ACID [Concomitant]
     Route: 048
     Dates: start: 20110330
  7. PAROXETINE HCL [Concomitant]
     Route: 048
     Dates: start: 20010101
  8. OMEPRAZOLE [Concomitant]
     Route: 048
     Dates: start: 20080101

REACTIONS (2)
  - LOWER RESPIRATORY TRACT INFECTION [None]
  - COSTOCHONDRITIS [None]
